FAERS Safety Report 5003627-1 (Version None)
Quarter: 2006Q2

REPORT INFORMATION
  Report Type: 
  Country: None (occurrence: None)
  Receive Date: 20060516
  Receipt Date: 20051116
  Transmission Date: 20061013
  Serious: Yes (Hospitalization, Disabling)
  Sender: FDA-Public Use
  Company Number: US-MERCK-0511USA03047

PATIENT
  Age: 73 Year
  Sex: Female
  Weight: 68 kg

DRUGS (5)
  1. VIOXX [Suspect]
     Indication: ARTHRITIS
     Route: 048
     Dates: start: 20010101, end: 20021201
  2. VIOXX [Suspect]
     Route: 048
     Dates: start: 20030101, end: 20040930
  3. TYLENOL (CAPLET) [Concomitant]
     Route: 065
  4. PRAVACHOL [Suspect]
     Route: 065
     Dates: start: 20021201, end: 20030101
  5. QUESTRAN [Suspect]
     Route: 065

REACTIONS (14)
  - CAROTID ARTERY DISEASE [None]
  - CHEST PAIN [None]
  - CORONARY ARTERY DISEASE [None]
  - DYSPNOEA PAROXYSMAL NOCTURNAL [None]
  - GOITRE [None]
  - HEAD INJURY [None]
  - HEPATIC STEATOSIS [None]
  - MYOCARDIAL INFARCTION [None]
  - NON-CARDIAC CHEST PAIN [None]
  - ORTHOPNOEA [None]
  - PALPITATIONS [None]
  - PLEURAL EFFUSION [None]
  - STOMACH DISCOMFORT [None]
  - URTICARIA [None]
